FAERS Safety Report 4305976-9 (Version None)
Quarter: 2004Q1

REPORT INFORMATION
  Report Type: 
  Country: None (occurrence: None)
  Receive Date: 20040225
  Receipt Date: 20040213
  Transmission Date: 20041129
  Serious: Yes (Death)
  Sender: FDA-Public Use
  Company Number: USA-2003-0007613

PATIENT
  Age: 31 Year
  Sex: Male
  Weight: 58 kg

DRUGS (6)
  1. OXYCODONE HCL [Suspect]
  2. HYDROCODONE BITARTRATE [Suspect]
  3. CAFFEINE (CAFFEINE) [Suspect]
  4. NICOTINE [Suspect]
  5. ACETAMINOPHEN [Suspect]
  6. ETHANOL(ETHANOL) [Suspect]

REACTIONS (5)
  - BLOOD ETHANOL INCREASED [None]
  - DRUG LEVEL ABOVE THERAPEUTIC [None]
  - HEAD INJURY [None]
  - POLYTRAUMATISM [None]
  - ROAD TRAFFIC ACCIDENT [None]
